FAERS Safety Report 15201332 (Version 1)
Quarter: 2018Q3

REPORT INFORMATION
  Report Type: Spontaneous
  Country: FR (occurrence: FR)
  Receive Date: 20180726
  Receipt Date: 20180726
  Transmission Date: 20181010
  Serious: Yes (Hospitalization)
  Sender: FDA-Public Use
  Company Number: FR-ROCHE-2157449

PATIENT
  Age: 38 Year
  Sex: Female

DRUGS (2)
  1. ZELBORAF [Suspect]
     Active Substance: VEMURAFENIB
     Indication: METASTATIC MALIGNANT MELANOMA
     Dosage: MOST RECENT DOSE ON 20/MAY/2018
     Route: 048
     Dates: start: 20180509
  2. COTELLIC [Suspect]
     Active Substance: COBIMETINIB
     Indication: METASTATIC MALIGNANT MELANOMA
     Dosage: MOST RECENT DOSE ON 20/MAY/2018
     Route: 048
     Dates: start: 20180509

REACTIONS (10)
  - Relapsing fever [Recovering/Resolving]
  - Erythema [Recovering/Resolving]
  - Burning sensation [Recovering/Resolving]
  - Stomatitis [Recovering/Resolving]
  - Oral fungal infection [Recovering/Resolving]
  - Photosensitivity reaction [Recovering/Resolving]
  - Hyperthermia [Recovering/Resolving]
  - Face oedema [Recovering/Resolving]
  - Erythema [Recovering/Resolving]
  - Photosensitivity reaction [Recovering/Resolving]

NARRATIVE: CASE EVENT DATE: 20180517
